FAERS Safety Report 4749544-3 (Version None)
Quarter: 2005Q3

REPORT INFORMATION
  Report Type: 
  Country: None (occurrence: None)
  Receive Date: 20050822
  Receipt Date: 20030729
  Transmission Date: 20060218
  Serious: Yes (Death, Hospitalization)
  Sender: FDA-Public Use
  Company Number: GB-AMGEN-US043784

PATIENT
  Sex: Female

DRUGS (5)
  1. ENBREL [Suspect]
     Indication: RHEUMATOID ARTHRITIS
     Route: 058
     Dates: start: 20020515
  2. PREDNISOLONE [Concomitant]
  3. CARBAMAZEPINE [Concomitant]
  4. FROBEN [Concomitant]
  5. ACETAMINOPHEN W/ CODEINE [Concomitant]

REACTIONS (6)
  - CHEST PAIN [None]
  - HEPATIC RUPTURE [None]
  - INTRA-ABDOMINAL HAEMORRHAGE [None]
  - MUSCLE HAEMORRHAGE [None]
  - URINARY BLADDER HAEMORRHAGE [None]
  - URINARY BLADDER RUPTURE [None]
